FAERS Safety Report 16059214 (Version 1)
Quarter: 2019Q1

REPORT INFORMATION
  Report Type: Spontaneous
  Country: DE (occurrence: DE)
  Receive Date: 20190311
  Receipt Date: 20190311
  Transmission Date: 20190418
  Serious: Yes (Other)
  Sender: FDA-Public Use
  Company Number: DE-009507513-1903DEU003779

PATIENT
  Sex: Female

DRUGS (1)
  1. NASONEX [Suspect]
     Active Substance: MOMETASONE FUROATE
     Indication: CHRONIC SINUSITIS

REACTIONS (2)
  - Product use in unapproved indication [Unknown]
  - Fungal oesophagitis [Unknown]
